FAERS Safety Report 4506433-7 (Version None)
Quarter: 2004Q4

REPORT INFORMATION
  Report Type: 
  Country: None (occurrence: None)
  Receive Date: 20041117
  Receipt Date: 20041101
  Transmission Date: 20050328
  Serious: Yes (Hospitalization)
  Sender: FDA-Public Use
  Company Number: 9246

PATIENT
  Age: 63 Year
  Sex: Female

DRUGS (9)
  1. METHOTREXATE [Suspect]
     Indication: RHEUMATOID ARTHRITIS
     Dosage: 200 MG IV
     Route: 042
     Dates: start: 20030317
  2. REMICADE [Suspect]
     Indication: RHEUMATOID ARTHRITIS
     Dosage: 12.5 MG WEEKLY IM
     Route: 030
     Dates: start: 20000911
  3. PREDNISONE [Concomitant]
  4. ACETYLSALICYLIC ACID [Concomitant]
  5. LANSOPRAZOLE [Concomitant]
  6. LACTULOSE [Concomitant]
  7. SULFASALAZINE [Concomitant]
  8. CELEBREX [Concomitant]
  9. DOTHIEPIN HYDROCHLORIDE [Concomitant]

REACTIONS (5)
  - CELLULITIS [None]
  - METHICILLIN-RESISTANT STAPHYLOCOCCAL AUREUS TEST POSITIVE [None]
  - OVARIAN CANCER [None]
  - PELVIC MASS [None]
  - SUBCUTANEOUS ABSCESS [None]
